FAERS Safety Report 4695483-6 (Version None)
Quarter: 2005Q2

REPORT INFORMATION
  Report Type: 
  Country: None (occurrence: None)
  Receive Date: 20050620
  Receipt Date: 20050620
  Transmission Date: 20051028
  Serious: Yes (Life-Threatening)
  Sender: FDA-Public Use
  Company Number: None

PATIENT
  Sex: Female
  Weight: 77.1115 kg

DRUGS (2)
  1. PAXIL [Suspect]
     Indication: ANXIETY
     Dosage: 20MG   EVERY MORNING   ORAL
     Route: 048
     Dates: start: 20040103, end: 20050606
  2. PAXIL [Suspect]
     Indication: DEPRESSION
     Dosage: 20MG   EVERY MORNING   ORAL
     Route: 048
     Dates: start: 20040103, end: 20050606

REACTIONS (9)
  - CONDUCTION DISORDER [None]
  - DRUG WITHDRAWAL SYNDROME [None]
  - EYE DISORDER [None]
  - FAMILY STRESS [None]
  - FEELING ABNORMAL [None]
  - MORBID THOUGHTS [None]
  - MUSCLE TWITCHING [None]
  - NERVOUS SYSTEM DISORDER [None]
  - SUICIDAL IDEATION [None]
